FAERS Safety Report 7691415-7 (Version None)
Quarter: 2011Q3

REPORT INFORMATION
  Report Type: 
  Country: None (occurrence: None)
  Receive Date: 20110818
  Receipt Date: 20110809
  Transmission Date: 20111222
  Serious: Yes (Death, Hospitalization)
  Sender: FDA-Public Use
  Company Number: FR-JNJFOC-20110805715

PATIENT
  Sex: Female

DRUGS (11)
  1. XARELTO [Suspect]
     Indication: HIP ARTHROPLASTY
     Route: 048
     Dates: start: 20110307, end: 20110325
  2. MIOREL [Concomitant]
  3. PROTELOS [Concomitant]
  4. CITALOPRAM HYDROBROMIDE [Concomitant]
  5. XYZAL [Concomitant]
  6. TRANXENE [Concomitant]
  7. NICARDIPINE HCL [Concomitant]
  8. NICOTINE [Concomitant]
  9. XARELTO [Suspect]
     Indication: THROMBOSIS PROPHYLAXIS
     Route: 048
     Dates: start: 20110307, end: 20110325
  10. ACETAMINOPHEN [Concomitant]
  11. TRAMADOL HCL [Concomitant]

REACTIONS (2)
  - RUPTURED CEREBRAL ANEURYSM [None]
  - CEREBRAL HAEMORRHAGE [None]
